FAERS Safety Report 10242527 (Version 1)
Quarter: 2014Q2

REPORT INFORMATION
  Report Type: Spontaneous
  Country: CN (occurrence: CN)
  Receive Date: 20140617
  Receipt Date: 20140617
  Transmission Date: 20141212
  Serious: Yes (Hospitalization, Other)
  Sender: FDA-Public Use
  Company Number: CN-PFIZER INC-2014161947

PATIENT
  Age: 70 Year
  Sex: Male

DRUGS (5)
  1. LIPITOR [Suspect]
     Indication: DRUG THERAPY
     Dosage: 20 MG, 1X/DAY
     Route: 048
     Dates: start: 20130724, end: 20130905
  2. BETALOC [Suspect]
     Indication: DRUG THERAPY
     Dosage: 47.5 MG, 1X/DAY
     Route: 048
     Dates: start: 20130726, end: 20130905
  3. ACERTIL COMP [Concomitant]
     Indication: DRUG THERAPY
     Dosage: 4 MG, 1X/DAY
     Route: 048
     Dates: start: 20130724, end: 20130905
  4. ACETYLSALICYLIC ACID [Concomitant]
     Indication: DRUG THERAPY
     Dosage: 0.1 G, 1X/DAY
     Route: 048
     Dates: start: 20130724, end: 20130905
  5. PLAVIX [Concomitant]
     Indication: DRUG THERAPY
     Dosage: 75 MG, 1X/DAY
     Route: 048
     Dates: start: 20130724, end: 20130905

REACTIONS (3)
  - Chest discomfort [Unknown]
  - Pain [Unknown]
  - Glycosylated haemoglobin increased [Not Recovered/Not Resolved]
